FAERS Safety Report 11047064 (Version 1)
Quarter: 2015Q2

REPORT INFORMATION
  Report Type: Spontaneous
  Country: US (occurrence: None)
  Receive Date: 20150417
  Receipt Date: 20150417
  Transmission Date: 20150821
  Serious: No
  Sender: FDA-Public Use
  Company Number: None

PATIENT
  Sex: Male

DRUGS (2)
  1. GENERIC LAMICTAL [Suspect]
     Active Substance: LAMOTRIGINE
     Indication: SEIZURE
     Route: 048
     Dates: start: 20090701
  2. GENERIC DEPAKOTE [Suspect]
     Active Substance: DIVALPROEX SODIUM
     Indication: EPILEPSY
     Dosage: DEPAKOTE ?3+DAY ?BY MOUTH?THERAPY?3-7-13-1/13/10
     Route: 048
     Dates: end: 20100113

REACTIONS (2)
  - Headache [None]
  - Dysphagia [None]
